FAERS Safety Report 5916062-6 (Version None)
Quarter: 2008Q4

REPORT INFORMATION
  Report Type: 
  Country: None (occurrence: None)
  Receive Date: 20081013
  Receipt Date: 20081008
  Transmission Date: 20090506
  Serious: Yes (Death)
  Sender: FDA-Public Use
  Company Number: FR-BRISTOL-MYERS SQUIBB COMPANY-14193700

PATIENT
  Age: 72 Year
  Sex: Female

DRUGS (9)
  1. ORENCIA [Suspect]
     Dates: start: 20080220, end: 20080301
  2. PREVISCAN [Concomitant]
  3. ISOPTIN [Concomitant]
     Dosage: 1 DOSAGE FORM = 20(UNIT NOT SPECIFIED)
  4. MEDIATENSYL [Concomitant]
  5. LEXOMIL [Concomitant]
  6. DEROXAT [Concomitant]
  7. ACTONEL [Concomitant]
     Dosage: 1 DOSAGE FORM = 35(UNIT NOT SPECIFIED).
  8. OROCAL [Concomitant]
  9. MINOCIN [Concomitant]
     Dates: end: 20080201

REACTIONS (2)
  - INTERSTITIAL LUNG DISEASE [None]
  - RESPIRATORY FAILURE [None]
